FAERS Safety Report 7451992-8 (Version None)
Quarter: 2011Q2

REPORT INFORMATION
  Report Type: 
  Country: None (occurrence: None)
  Receive Date: 20110422
  Receipt Date: 20110407
  Transmission Date: 20111010
  Serious: Yes (Hospitalization)
  Sender: FDA-Public Use
  Company Number: 028678

PATIENT
  Sex: Male

DRUGS (1)
  1. CIMZIA [Suspect]
     Indication: CROHN'S DISEASE
     Dosage: (400 MG 1X/4 WEEKS SUBCUTANEOUS)
     Route: 058
     Dates: start: 20101202

REACTIONS (4)
  - RECTAL HAEMORRHAGE [None]
  - WEIGHT DECREASED [None]
  - CLOSTRIDIAL INFECTION [None]
  - HAEMOGLOBIN DECREASED [None]
